FAERS Safety Report 10086234 (Version 1)
Quarter: 2014Q2

REPORT INFORMATION
  Report Type: Spontaneous
  Country: US (occurrence: None)
  Receive Date: 20140417
  Receipt Date: 20140417
  Transmission Date: 20141212
  Serious: Yes (Other)
  Sender: FDA-Public Use
  Company Number: None

PATIENT
  Age: 51 Year
  Sex: Female
  Weight: 57.15 kg

DRUGS (2)
  1. TAMIFLU [Suspect]
     Indication: PROPHYLAXIS
     Dosage: 10 PILLS.
     Dates: start: 20140401, end: 20140410
  2. TAMIFLU [Suspect]
     Indication: INFLUENZA VIRUS TEST POSITIVE
     Dosage: 10 PILLS.
     Dates: start: 20140401, end: 20140410

REACTIONS (16)
  - Migraine [None]
  - Nausea [None]
  - Vertigo [None]
  - Impaired driving ability [None]
  - Limb discomfort [None]
  - Ocular hyperaemia [None]
  - Eyelid disorder [None]
  - Eyelid pain [None]
  - Sinus disorder [None]
  - Swelling [None]
  - Palpitations [None]
  - Body temperature increased [None]
  - Cold sweat [None]
  - Insomnia [None]
  - Visual impairment [None]
  - Pollakiuria [None]
